FAERS Safety Report 5371821-6 (Version None)
Quarter: 2007Q2

REPORT INFORMATION
  Report Type: 
  Country: None (occurrence: None)
  Receive Date: 20070627
  Receipt Date: 20070620
  Transmission Date: 20071010
  Serious: Yes (Other)
  Sender: FDA-Public Use
  Company Number: US-ASTRAZENECA-2007UW14790

PATIENT
  Age: 62 Year
  Sex: Female
  Weight: 54.4 kg

DRUGS (2)
  1. CRESTOR [Suspect]
     Indication: BLOOD CHOLESTEROL INCREASED
     Route: 048
     Dates: end: 20060101
  2. BLOOD PRESSURE MEDICATION [Concomitant]

REACTIONS (3)
  - MOBILITY DECREASED [None]
  - MYALGIA [None]
  - PAIN [None]
